FAERS Safety Report 6322215-8 (Version None)
Quarter: 2009Q3

REPORT INFORMATION
  Report Type: 
  Country: None (occurrence: None)
  Receive Date: 20090824
  Receipt Date: 20090812
  Transmission Date: 20100115
  Serious: Yes (Other)
  Sender: FDA-Public Use
  Company Number: JP-PFIZER INC-2009256023

PATIENT
  Age: 79 Year

DRUGS (1)
  1. SULPERAZON [Suspect]
     Dosage: 1 G, 2X/DAY
     Route: 042
     Dates: start: 20090812, end: 20090812

REACTIONS (1)
  - SHOCK [None]
